FAERS Safety Report 9804527 (Version 2)
Quarter: 2014Q2

REPORT INFORMATION
  Report Type: Spontaneous
  Country: US (occurrence: US)
  Receive Date: 20140108
  Receipt Date: 20140429
  Transmission Date: 20141212
  Serious: No
  Sender: FDA-Public Use
  Company Number: US-009507513-1401USA002635

PATIENT
  Sex: Female
  Weight: 51.25 kg

DRUGS (6)
  1. CLARITIN LIQUIGELS [Suspect]
     Indication: NASOPHARYNGITIS
     Dosage: UNK, QD
     Route: 048
  2. CLARITIN LIQUIGELS [Suspect]
     Indication: RHINORRHOEA
     Dosage: UNK, QD
     Route: 048
  3. CARDIZEM [Concomitant]
     Indication: PRODUCT USED FOR UNKNOWN INDICATION
     Dosage: UNK, UNKNOWN
  4. IMDUR [Concomitant]
     Indication: PRODUCT USED FOR UNKNOWN INDICATION
     Dosage: UNK, UNKNOWN
  5. COUMADIN [Concomitant]
     Indication: PRODUCT USED FOR UNKNOWN INDICATION
     Dosage: UNK, UNKNOWN
  6. PROVIGIL [Concomitant]
     Indication: NARCOLEPSY
     Dosage: UNK, UNKNOWN

REACTIONS (3)
  - Dyspnoea [Not Recovered/Not Resolved]
  - Cough [Not Recovered/Not Resolved]
  - Drug effect decreased [Unknown]
